FAERS Safety Report 8918380 (Version 1)
Quarter: 2012Q4

REPORT INFORMATION
  Report Type: 
  Country: US (occurrence: US)
  Receive Date: 20121120
  Receipt Date: 20121120
  Transmission Date: 20130627
  Serious: No
  Sender: FDA-Public Use
  Company Number: US-ASTRAZENECA-2012SE17155

PATIENT
  Age: 55 Year
  Sex: Female
  Weight: 70.3 kg

DRUGS (4)
  1. NEXIUM [Suspect]
     Indication: GASTRIC ULCER HAEMORRHAGE
     Dosage: 2 PER DAY
     Route: 048
     Dates: start: 2005, end: 2008
  2. NEXIUM [Suspect]
     Indication: GASTRIC ULCER HAEMORRHAGE
     Dosage: ONCE DAILY
     Route: 048
     Dates: start: 2008
  3. PRILOSEC [Suspect]
     Indication: GASTRIC ULCER HAEMORRHAGE
     Dosage: DAILY
     Route: 048
     Dates: start: 2010, end: 2010
  4. PRILOSEC [Suspect]
     Indication: GASTRIC ULCER HAEMORRHAGE
     Route: 048
     Dates: start: 201203, end: 201203

REACTIONS (4)
  - Off label use [Unknown]
  - Drug ineffective [Unknown]
  - Flatulence [Unknown]
  - Blood pressure decreased [Unknown]
